FAERS Safety Report 6481641-7 (Version None)
Quarter: 2009Q4

REPORT INFORMATION
  Report Type: 
  Country: None (occurrence: None)
  Receive Date: 20091208
  Receipt Date: 20090817
  Transmission Date: 20100525
  Serious: No
  Sender: FDA-Public Use
  Company Number: US-AMGEN-KDL339367

PATIENT
  Sex: Male

DRUGS (10)
  1. ENBREL [Suspect]
     Indication: PSORIASIS
     Route: 058
     Dates: start: 20031105, end: 20081004
  2. DUONEB [Concomitant]
  3. CIPROFLOXACIN [Concomitant]
  4. NORVASC [Concomitant]
  5. NEXIUM [Concomitant]
  6. AMITRIPTYLINE [Concomitant]
  7. SINGULAIR [Concomitant]
  8. ASPIRIN [Concomitant]
  9. CALCIPOTRIENE [Concomitant]
     Dates: start: 20071121, end: 20090201
  10. CLOBETASOL PROPIONATE [Concomitant]

REACTIONS (9)
  - AMNESIA [None]
  - DRUG DELIVERY DEVICE IMPLANTATION [None]
  - DYSPNOEA [None]
  - HYPERKERATOSIS [None]
  - IMPAIRED HEALING [None]
  - OPEN WOUND [None]
  - SKIN LACERATION [None]
  - THERAPEUTIC RESPONSE DECREASED [None]
  - WEIGHT INCREASED [None]
